FAERS Safety Report 5105685-2 (Version None)
Quarter: 2006Q3

REPORT INFORMATION
  Report Type: 
  Country: None (occurrence: None)
  Receive Date: 20060915
  Receipt Date: 20060905
  Transmission Date: 20061208
  Serious: Yes (Hospitalization)
  Sender: FDA-Public Use
  Company Number: US-ROCHE-462319

PATIENT
  Age: 73 Year
  Sex: Male

DRUGS (1)
  1. XELODA [Suspect]
     Route: 048
     Dates: start: 20060315, end: 20060618

REACTIONS (8)
  - COLON CANCER [None]
  - CULTURE URINE POSITIVE [None]
  - INTERNATIONAL NORMALISED RATIO INCREASED [None]
  - INTESTINAL OBSTRUCTION [None]
  - MALIGNANT NEOPLASM PROGRESSION [None]
  - PROTHROMBIN TIME PROLONGED [None]
  - STAPHYLOCOCCAL INFECTION [None]
  - VOMITING [None]
